FAERS Safety Report 19406765 (Version 1)
Quarter: 2021Q2

REPORT INFORMATION
  Report Type: Spontaneous
  Country: US (occurrence: US)
  Receive Date: 20210611
  Receipt Date: 20210611
  Transmission Date: 20210717
  Serious: Yes (Other)
  Sender: FDA-Public Use
  Company Number: US-PFIZER INC-2021483288

PATIENT
  Age: 35 Year
  Sex: Female
  Weight: 58.97 kg

DRUGS (1)
  1. LIDOCAINE HCL [Suspect]
     Active Substance: LIDOCAINE HYDROCHLORIDE
     Indication: LOCAL ANAESTHESIA
     Dosage: UNK

REACTIONS (7)
  - Drug ineffective [Unknown]
  - Dyspnoea [Unknown]
  - Toxicity to various agents [Unknown]
  - Anaphylactic reaction [Unknown]
  - Urticaria [Unknown]
  - Overdose [Unknown]
  - Peripheral swelling [Unknown]
